FAERS Safety Report 5040273-8 (Version None)
Quarter: 2006Q2

REPORT INFORMATION
  Report Type: 
  Country: None (occurrence: None)
  Receive Date: 20060630
  Receipt Date: 20060623
  Transmission Date: 20061013
  Serious: Yes (Life-Threatening, Hospitalization)
  Sender: FDA-Public Use
  Company Number: US-JNJFOC-20060606299

PATIENT
  Age: 89 Year
  Sex: Male

DRUGS (1)
  1. ULTRAM ER [Suspect]
     Indication: POSTOPERATIVE ANALGESIA

REACTIONS (1)
  - SUICIDE ATTEMPT [None]
